FAERS Safety Report 9570606 (Version 1)
Quarter: 2013Q4

REPORT INFORMATION
  Report Type: Spontaneous
  Country: US (occurrence: US)
  Receive Date: 20131001
  Receipt Date: 20131001
  Transmission Date: 20140711
  Serious: Yes (Other)
  Sender: FDA-Public Use
  Company Number: US-AMGEN-USASP2013068309

PATIENT
  Age: 60 Year
  Sex: Male

DRUGS (2)
  1. ENBREL [Suspect]
     Indication: RHEUMATOID ARTHRITIS
     Dosage: UNK, QWK
     Route: 065
     Dates: start: 20121215, end: 201302
  2. METHOTREXATE [Concomitant]
     Dosage: UNK

REACTIONS (2)
  - Small cell lung cancer [Not Recovered/Not Resolved]
  - Pneumonia [Recovered/Resolved]
